FAERS Safety Report 17445145 (Version 1)
Quarter: 2020Q1

REPORT INFORMATION
  Report Type: Spontaneous
  Country: US (occurrence: US)
  Receive Date: 20200221
  Receipt Date: 20200221
  Transmission Date: 20200409
  Serious: No
  Sender: FDA-Public Use
  Company Number: US-PFIZER INC-2020077178

PATIENT
  Sex: Female

DRUGS (1)
  1. FLECTOR [Suspect]
     Active Substance: DICLOFENAC EPOLAMINE
     Dosage: UNK (APPLIED TO FOREARM, BETWEEN THE ELBOW AND THUMB)
     Dates: start: 202002, end: 202002

REACTIONS (2)
  - Application site inflammation [Unknown]
  - Application site dermatitis [Unknown]

NARRATIVE: CASE EVENT DATE: 202002
